FAERS Safety Report 5322758-X (Version None)
Quarter: 2007Q2

REPORT INFORMATION
  Report Type: 
  Country: None (occurrence: None)
  Receive Date: 20070511
  Receipt Date: 20070503
  Transmission Date: 20071010
  Serious: Yes (Disabling, Other)
  Sender: FDA-Public Use
  Company Number: US-PFIZER INC-2006128173

PATIENT
  Sex: Male

DRUGS (2)
  1. BEXTRA [Suspect]
  2. ACETYLSALICYLIC ACID SRT [Concomitant]

REACTIONS (1)
  - CEREBROVASCULAR ACCIDENT [None]
